FAERS Safety Report 9130723 (Version 1)
Quarter: 2013Q1

REPORT INFORMATION
  Report Type: Spontaneous
  Country: PL (occurrence: PL)
  Receive Date: 20130301
  Receipt Date: 20130301
  Transmission Date: 20140127
  Serious: Yes (Death, Hospitalization)
  Sender: FDA-Public Use
  Company Number: PL-AMGEN-POLSP2013012697

PATIENT
  Age: 55 Year
  Sex: Female
  Weight: 76 kg

DRUGS (12)
  1. DENOSUMAB [Suspect]
     Indication: METASTASES TO BONE
     Dosage: UNK
     Dates: start: 20111130, end: 20111228
  2. NAVELBINE [Suspect]
     Indication: BREAST CANCER
     Dosage: UNK
     Dates: start: 20111114, end: 20111219
  3. TANEZUMAB [Concomitant]
     Indication: METASTATIC PAIN
     Dosage: 10 MG, Q8WK
     Route: 042
     Dates: start: 20110616, end: 20111206
  4. FENTANYL [Concomitant]
     Indication: PAIN
     Dosage: UNK
     Dates: start: 201101
  5. OMEPRAZOLE [Concomitant]
     Indication: PROPHYLAXIS AGAINST GASTROINTESTINAL ULCER
     Dosage: UNK
     Dates: start: 20110905
  6. METOPROLOL [Concomitant]
     Indication: HYPERTENSION
     Dosage: UNK
     Dates: start: 20110406
  7. SPIRONOLACTONE [Concomitant]
     Indication: HYPERTENSION
     Dosage: UNK
     Dates: start: 20110406
  8. KETOPROFEN [Concomitant]
     Indication: PAIN
     Dosage: UNK
     Dates: start: 20050712
  9. PAMIDRONATE DISODIUM [Concomitant]
     Indication: METASTASES TO BONE
     Dosage: UNK
     Dates: start: 20050630
  10. MEGESTROL ACETATE [Concomitant]
     Dosage: UNK
     Dates: start: 20100820
  11. CETIRIZINE [Concomitant]
     Indication: PRURITUS
  12. CODEINE PHOSPHATE W/PARACETAMOL [Concomitant]

REACTIONS (2)
  - Breast cancer [Fatal]
  - Anaemia [Not Recovered/Not Resolved]
